FAERS Safety Report 5904809-4 (Version None)
Quarter: 2008Q4

REPORT INFORMATION
  Report Type: 
  Country: None (occurrence: None)
  Receive Date: 20081001
  Receipt Date: 20080925
  Transmission Date: 20090506
  Serious: Yes (Disabling)
  Sender: FDA-Public Use
  Company Number: FR-MERCK-0808FRA00032

PATIENT
  Age: 78 Year
  Sex: Male

DRUGS (6)
  1. INVANZ [Suspect]
     Indication: SEPSIS
     Route: 041
     Dates: start: 20080731, end: 20080811
  2. OMEPRAZOLE [Concomitant]
     Route: 048
  3. ACETAMINOPHEN [Concomitant]
     Route: 048
  4. SODIUM POLYSTYRENE SULFONATE [Concomitant]
     Route: 048
  5. IRON (UNSPECIFIED) [Concomitant]
     Route: 048
  6. NADROPARIN CALCIUM [Concomitant]
     Route: 058

REACTIONS (2)
  - GAIT DISTURBANCE [None]
  - MUSCULAR WEAKNESS [None]
